FAERS Safety Report 20968485 (Version 3)
Quarter: 2022Q2

REPORT INFORMATION
  Report Type: Spontaneous
  Country: JP (occurrence: JP)
  Receive Date: 20220616
  Receipt Date: 20220628
  Transmission Date: 20220721
  Serious: Yes (Hospitalization, Other)
  Sender: FDA-Public Use
  Company Number: JP-PFIZER INC-202200820708

PATIENT
  Age: 19 Year
  Sex: Male
  Weight: 75.5 kg

DRUGS (8)
  1. METHOTREXATE [Suspect]
     Active Substance: METHOTREXATE
     Indication: Osteosarcoma
     Dosage: 45 MG/M2(WEEK 1 DAYS 1 )(84.2 MG/DAY X 2DAYS)
     Dates: start: 20050719
  2. METHOTREXATE [Suspect]
     Active Substance: METHOTREXATE
     Dosage: 45 MG/M2(WEEK 1 DAYS 2 )(84.2 MG/DAY X 2DAYS)
     Dates: start: 20050720
  3. METHOTREXATE [Suspect]
     Active Substance: METHOTREXATE
     Dosage: 20 G, DAILY, HIGH DOSE MTX 12 G/M2(WEEK 3 DAY 1)
     Dates: start: 20050802
  4. METHOTREXATE [Suspect]
     Active Substance: METHOTREXATE
     Dosage: HIGH DOSE MTX 12 G/M2(WEEK 4 DAY 1)
     Dates: start: 20050809
  5. LEUCOVORIN CALCIUM [Concomitant]
     Active Substance: LEUCOVORIN CALCIUM
     Indication: Osteosarcoma
     Dosage: 27 MG, 2X/DAY
     Dates: start: 20050802
  6. LEUCOVORIN CALCIUM [Concomitant]
     Active Substance: LEUCOVORIN CALCIUM
     Dosage: 27 MG, 2X/DAY
     Dates: start: 20050809
  7. CISPLATIN [Concomitant]
     Active Substance: CISPLATIN
     Indication: Osteosarcoma
     Dosage: 120 MG/M2 /DAY (224.4 MG/DAY) WEEK 5 DAY 1(PLANNED)
  8. CISPLATIN [Concomitant]
     Active Substance: CISPLATIN
     Dosage: 120 MG/M2 /DAY (224.4 MG/DAY) WEEK 8 DAY 1(PLANNED)

REACTIONS (2)
  - Neurotoxicity [Recovering/Resolving]
  - Encephalopathy [Recovering/Resolving]

NARRATIVE: CASE EVENT DATE: 20050817
